FAERS Safety Report 17986911 (Version 1)
Quarter: 2020Q3

REPORT INFORMATION
  Report Type: Spontaneous
  Country: US (occurrence: US)
  Receive Date: 20200707
  Receipt Date: 20200707
  Transmission Date: 20201103
  Serious: No
  Sender: FDA-Public Use
  Company Number: US-BION-008488

PATIENT

DRUGS (1)
  1. BIONPHARMA^S AMANTADINE HYDROCHLORIDE CAPSULES 100 MG [Suspect]
     Active Substance: AMANTADINE HYDROCHLORIDE
     Indication: SOMNOLENCE
     Dosage: STRENGTH: 100 MG; ONE IN MORNING AND ONE AT LUNCH

REACTIONS (3)
  - Product use in unapproved indication [Not Recovered/Not Resolved]
  - Livedo reticularis [Not Recovered/Not Resolved]
  - Tremor [Not Recovered/Not Resolved]
